FAERS Safety Report 8765900 (Version 5)
Quarter: 2013Q3

REPORT INFORMATION
  Report Type: Spontaneous
  Country: US (occurrence: US)
  Receive Date: 20120904
  Receipt Date: 20130923
  Transmission Date: 20140515
  Serious: Yes (Hospitalization, Disabling, Other)
  Sender: FDA-Public Use
  Company Number: US-009507513-1208USA012645

PATIENT
  Sex: Female
  Weight: 118.82 kg

DRUGS (3)
  1. NUVARING [Suspect]
     Indication: CONTRACEPTION
     Dosage: UNK
     Dates: start: 2008, end: 200810
  2. VENTOLIN HFA [Concomitant]
     Indication: ASTHMA
     Dosage: UNK
     Dates: start: 2002
  3. VICODIN [Concomitant]

REACTIONS (27)
  - Cardiac arrest [Unknown]
  - Pulmonary embolism [Recovering/Resolving]
  - Left ventricular dysfunction [Unknown]
  - Respiratory arrest [Unknown]
  - Convulsion [Unknown]
  - Tonsillectomy [Unknown]
  - Adenoidectomy [Unknown]
  - Obesity [Unknown]
  - Tonsillitis [Unknown]
  - Bipolar disorder [Unknown]
  - Thromboembolectomy [Unknown]
  - Acute respiratory failure [Unknown]
  - Wisdom teeth removal [Unknown]
  - Pneumothorax [Unknown]
  - Abscess [Unknown]
  - Hypercoagulation [Unknown]
  - Pulmonary infarction [Recovering/Resolving]
  - Hypotension [Unknown]
  - Ovarian cyst [Unknown]
  - Dysmenorrhoea [Unknown]
  - Pain in extremity [Unknown]
  - Oedema peripheral [Unknown]
  - Musculoskeletal chest pain [Unknown]
  - Pelvic haematoma [Unknown]
  - Intra-abdominal haemorrhage [Unknown]
  - Ovarian cyst ruptured [Unknown]
  - Laparoscopy [Unknown]
